FAERS Safety Report 10071563 (Version 1)
Quarter: 2014Q2

REPORT INFORMATION
  Report Type: Spontaneous
  Country: US (occurrence: US)
  Receive Date: 20140410
  Receipt Date: 20140410
  Transmission Date: 20141212
  Serious: Yes (Other)
  Sender: FDA-Public Use
  Company Number: US-RB-065653-14

PATIENT
  Age: 0 None
  Sex: Female

DRUGS (4)
  1. SUBOXONE FILM [Suspect]
     Indication: DRUG DEPENDENCE
     Dosage: SUBOXONE FILM
     Route: 064
     Dates: start: 201302, end: 20130317
  2. GENERIC BUPRENORPHINE [Suspect]
     Indication: DRUG DEPENDENCE
     Route: 064
     Dates: start: 20130318, end: 20131120
  3. GENERIC BUPRENORPHINE [Suspect]
     Route: 063
     Dates: start: 20131120, end: 201401
  4. PRENATAL VITAMINS [Concomitant]
     Indication: NUTRITIONAL SUPPLEMENTATION
     Dosage: DOSING DETAILS UNKNOWN, MOTHER USED 1 TABLET
     Route: 064
     Dates: start: 20130318, end: 20131120

REACTIONS (3)
  - Foetal exposure during pregnancy [Recovered/Resolved]
  - Fever neonatal [Recovered/Resolved]
  - Exposure during breast feeding [Recovered/Resolved]
